FAERS Safety Report 7724823-6 (Version None)
Quarter: 2011Q3

REPORT INFORMATION
  Report Type: 
  Country: None (occurrence: None)
  Receive Date: 20110901
  Receipt Date: 20110826
  Transmission Date: 20111222
  Serious: Yes (Other)
  Sender: FDA-Public Use
  Company Number: GW-ABBOTT-11P-071-0846027-00

PATIENT
  Sex: Female

DRUGS (5)
  1. ZIDOVUDINE [Concomitant]
     Indication: HIV INFECTION
     Route: 048
     Dates: start: 20110610, end: 20110719
  2. COTRIM [Concomitant]
     Indication: PROPHYLAXIS
     Route: 048
     Dates: start: 20110610
  3. ABACAVIR [Concomitant]
     Indication: HIV INFECTION
     Route: 048
     Dates: start: 20110720, end: 20110817
  4. KALETRA [Suspect]
     Indication: HIV INFECTION
     Dosage: 200MG/50 MG X 2 TABLETS TWICE DAILY
     Route: 048
     Dates: start: 20110610, end: 20110817
  5. LAMIVUDINE [Concomitant]
     Indication: HIV INFECTION
     Route: 048
     Dates: start: 20110610, end: 20110817

REACTIONS (2)
  - BLOOD CREATININE INCREASED [None]
  - RENAL FAILURE [None]
